FAERS Safety Report 7101839-4 (Version None)
Quarter: 2010Q4

REPORT INFORMATION
  Report Type: 
  Country: None (occurrence: None)
  Receive Date: 20101115
  Receipt Date: 20101109
  Transmission Date: 20110411
  Serious: Yes (Life-Threatening, Hospitalization, Other)
  Sender: FDA-Public Use
  Company Number: PHHY2009FR44060

PATIENT
  Sex: Female

DRUGS (8)
  1. VOLTAREN [Suspect]
     Dosage: 1 DF PER DAY
     Route: 048
     Dates: start: 20090825, end: 20090909
  2. SALAZOPYRINE [Suspect]
     Dosage: 1 G PER DAY
     Dates: start: 20090825, end: 20090907
  3. SALAZOPYRINE [Suspect]
     Dosage: 1 DF, QD
     Dates: start: 20101027, end: 20101028
  4. NEXIUM [Suspect]
     Dosage: UNK
     Dates: start: 20090825, end: 20090909
  5. ACUPAN [Suspect]
     Dosage: UNK
     Dates: start: 20090825, end: 20090909
  6. METHOTREXATE [Suspect]
     Dosage: 4 TABLETS
     Dates: start: 20090909
  7. RIFINAH [Suspect]
     Dosage: 1 TABLET
     Dates: start: 20090909
  8. ENBREL [Suspect]

REACTIONS (25)
  - ABORTION SPONTANEOUS [None]
  - ALANINE AMINOTRANSFERASE INCREASED [None]
  - ANAEMIA [None]
  - ASPARTATE AMINOTRANSFERASE INCREASED [None]
  - BLOOD ALKALINE PHOSPHATASE INCREASED [None]
  - BLOOD LACTATE DEHYDROGENASE INCREASED [None]
  - C-REACTIVE PROTEIN INCREASED [None]
  - CYTOLYTIC HEPATITIS [None]
  - DRUG ADMINISTRATION ERROR [None]
  - DRUG EXPOSURE DURING PREGNANCY [None]
  - DRUG RASH WITH EOSINOPHILIA AND SYSTEMIC SYMPTOMS [None]
  - EYELID OEDEMA [None]
  - FACE OEDEMA [None]
  - GAMMA-GLUTAMYLTRANSFERASE INCREASED [None]
  - LYMPHADENOPATHY [None]
  - LYMPHOCYTOSIS [None]
  - MONONUCLEOSIS SYNDROME [None]
  - NAUSEA [None]
  - PRURITUS GENERALISED [None]
  - PYREXIA [None]
  - RASH [None]
  - RASH GENERALISED [None]
  - RASH MACULO-PAPULAR [None]
  - RASH PUSTULAR [None]
  - VOMITING [None]
